FAERS Safety Report 13925636 (Version 3)
Quarter: 2019Q1

REPORT INFORMATION
  Report Type: Report from Study
  Country: US (occurrence: US)
  Receive Date: 20170831
  Receipt Date: 20190328
  Transmission Date: 20190417
  Serious: No
  Sender: FDA-Public Use
  Company Number: US-SA-2017SA125904

PATIENT
  Age: 58 Year
  Sex: Female
  Weight: 51.25 kg

DRUGS (13)
  1. PROBIOTICS NOS [Concomitant]
     Active Substance: PROBIOTICS NOS
     Dosage: 1 DF, QD
     Dates: start: 201706
  2. ERGOCALCIFEROL. [Concomitant]
     Active Substance: ERGOCALCIFEROL
     Dosage: 2000 IU,QD
     Route: 065
     Dates: start: 201402
  3. RHEUMATE [Concomitant]
     Active Substance: LEVOMEFOLIC ACID\METHYLCOBALAMIN\TURMERIC
     Dosage: 1 DF, BID
     Dates: start: 201705
  4. BUSPAR [Concomitant]
     Active Substance: BUSPIRONE HYDROCHLORIDE
     Dosage: 10 MG,BID
     Route: 065
     Dates: start: 200510
  5. CLOPIDOGREL [Concomitant]
     Active Substance: CLOPIDOGREL BISULFATE
     Dosage: 75 MG,QD
     Route: 065
     Dates: start: 201007
  6. METHOTREXATE. [Concomitant]
     Active Substance: METHOTREXATE
     Indication: RHEUMATOID ARTHRITIS
     Dosage: 2.5 MG, 3 TIMES WEEKLY
     Route: 065
     Dates: start: 201308
  7. EXCEDRIN [CAFFEINE;PARACETAMOL] [Concomitant]
     Active Substance: ACETAMINOPHEN\CAFFEINE
     Indication: HEADACHE
     Dosage: 1 DF,PRN
     Route: 065
  8. CALCIUM [Concomitant]
     Active Substance: CALCIUM
     Dosage: 600 MG,QD
     Route: 065
     Dates: start: 200210
  9. MULTIVITAMIN [VITAMINS NOS] [Concomitant]
     Dosage: 1 DF, QD
  10. PRAVASTATIN. [Concomitant]
     Active Substance: PRAVASTATIN
     Dosage: 10 MG,QD
     Route: 065
     Dates: start: 200811
  11. IBUPROFEN. [Concomitant]
     Active Substance: IBUPROFEN
     Indication: PAIN
     Dosage: 1 DF,PRN
     Route: 065
  12. SARILUMAB [Suspect]
     Active Substance: SARILUMAB
     Indication: RHEUMATOID ARTHRITIS
     Dosage: 200 MG, 1X
     Route: 058
     Dates: start: 20170624, end: 20170624
  13. ESTRACE [Concomitant]
     Active Substance: ESTRADIOL
     Dosage: 2 G,BIW
     Route: 065
     Dates: start: 201411

REACTIONS (6)
  - Migraine [Recovered/Resolved]
  - Erythema [Recovering/Resolving]
  - Injection site pain [Recovered/Resolved]
  - Injection site rash [Recovered/Resolved]
  - Injection site bruising [Recovered/Resolved]
  - Injection site swelling [Recovered/Resolved]

NARRATIVE: CASE EVENT DATE: 2017
